FAERS Safety Report 17871105 (Version 1)
Quarter: 2020Q2

REPORT INFORMATION
  Report Type: Spontaneous
  Country: US (occurrence: US)
  Receive Date: 20200608
  Receipt Date: 20200608
  Transmission Date: 20200714
  Serious: Yes (Disabling)
  Sender: FDA-Public Use
  Company Number: None

PATIENT
  Sex: Female

DRUGS (1)
  1. NABUMETONE. [Suspect]
     Active Substance: NABUMETONE
     Indication: OSTEOARTHRITIS

REACTIONS (3)
  - Vertigo [None]
  - Vertigo positional [None]
  - Tinnitus [None]
